FAERS Safety Report 16058984 (Version 1)
Quarter: 2019Q1

REPORT INFORMATION
  Report Type: Spontaneous
  Country: US (occurrence: US)
  Receive Date: 20190311
  Receipt Date: 20190311
  Transmission Date: 20190418
  Serious: No
  Sender: FDA-Public Use
  Company Number: US-GILEAD-2019-0395306

PATIENT
  Age: 49 Year
  Sex: Male
  Weight: 81.65 kg

DRUGS (5)
  1. DIPHENOXYLATE [Suspect]
     Active Substance: DIPHENOXYLATE
     Indication: DIARRHOEA
     Dosage: 2.5 MG, QID
     Route: 065
  2. DIPHENOXYLATE [Suspect]
     Active Substance: DIPHENOXYLATE
     Indication: GASTROINTESTINAL DISORDER
  3. TIVICAY [Suspect]
     Active Substance: DOLUTEGRAVIR SODIUM
     Indication: ANTIVIRAL TREATMENT
     Dosage: 50 MG
     Route: 048
  4. DESCOVY [Suspect]
     Active Substance: EMTRICITABINE\TENOFOVIR ALAFENAMIDE FUMARATE
     Indication: ANTIVIRAL TREATMENT
     Dosage: 200//25 MG ONCE DAILY
     Route: 048
  5. PREZCOBIX [Suspect]
     Active Substance: COBICISTAT\DARUNAVIR ETHANOLATE
     Indication: ANTIVIRAL TREATMENT
     Dosage: 800-150 MG QD
     Route: 048

REACTIONS (3)
  - Haematochezia [Recovered/Resolved]
  - Gastrointestinal disorder [Unknown]
  - Diarrhoea [Not Recovered/Not Resolved]

NARRATIVE: CASE EVENT DATE: 201711
